FAERS Safety Report 4335721-2 (Version None)
Quarter: 2004Q2

REPORT INFORMATION
  Report Type: 
  Country: None (occurrence: None)
  Receive Date: 20040406
  Receipt Date: 20040323
  Transmission Date: 20050107
  Serious: Yes (Hospitalization)
  Sender: FDA-Public Use
  Company Number: 04P-163-0254317-00

PATIENT
  Age: 22 Year
  Sex: Male
  Weight: 61.2356 kg

DRUGS (1)
  1. DEPAKOTE TABLETS (DEPAKOTE) (DIVALPROEX SODIUM) (DIVALPROEX SODIUM) [Suspect]
     Indication: EPILEPSY
     Dosage: 750 MG, 2 IN 1 D, PER ORAL
     Route: 048
     Dates: start: 20020101

REACTIONS (6)
  - ANTICONVULSANT DRUG LEVEL DECREASED [None]
  - DIARRHOEA [None]
  - DIZZINESS [None]
  - DRUG LEVEL INCREASED [None]
  - NAUSEA [None]
  - VOMITING [None]
